FAERS Safety Report 16903837 (Version 1)
Quarter: 2019Q4

REPORT INFORMATION
  Report Type: Spontaneous
  Country: US (occurrence: US)
  Receive Date: 20190817
  Receipt Date: 20190817
  Transmission Date: 20200122
  Serious: Yes (Hospitalization)
  Sender: FDA-Public Use
  Company Number: None

PATIENT
  Sex: Male
  Weight: 59 kg

DRUGS (3)
  1. IFOSFAMIDE. [Suspect]
     Active Substance: IFOSFAMIDE
     Dates: end: 20190716
  2. CISPLATIN. [Suspect]
     Active Substance: CISPLATIN
     Dates: end: 20190716
  3. TAXOL [Suspect]
     Active Substance: PACLITAXEL
     Dates: end: 20190712

REACTIONS (9)
  - Muscle atrophy [None]
  - Febrile neutropenia [None]
  - Weight decreased [None]
  - Lipodystrophy acquired [None]
  - Malnutrition [None]
  - Refeeding syndrome [None]
  - Atelectasis [None]
  - Pneumonia [None]
  - Decreased appetite [None]

NARRATIVE: CASE EVENT DATE: 20190712
